FAERS Safety Report 7466747-8 (Version None)
Quarter: 2011Q2

REPORT INFORMATION
  Report Type: 
  Country: None (occurrence: None)
  Receive Date: 20110509
  Receipt Date: 20100823
  Transmission Date: 20111010
  Serious: No
  Sender: FDA-Public Use
  Company Number: US-ALEXION-A201001058

PATIENT

DRUGS (9)
  1. CALTRATE                           /00108001/ [Concomitant]
     Dosage: 600 MG, QD
     Route: 048
  2. VITAMIN C                          /00008001/ [Concomitant]
     Dosage: 500 MG, BID
     Route: 048
  3. VITAMIN B12                        /00056201/ [Concomitant]
     Indication: HYPOVITAMINOSIS
     Dosage: 1000 MG, QD
     Route: 048
  4. TYLENOL EXTRA STRENGTH [Concomitant]
     Indication: ARTHRITIS
     Dosage: 1 TAB AM; 1 TAB QHS
     Route: 048
  5. SOLIRIS [Suspect]
     Dosage: UNK
     Route: 042
  6. SOLIRIS [Suspect]
     Indication: PAROXYSMAL NOCTURNAL HAEMOGLOBINURIA
     Dosage: 900 MG, Q2W
     Route: 042
  7. SOTALOL HCL [Concomitant]
     Indication: ARRHYTHMIA
     Dosage: 80 MG, BID
     Route: 048
  8. ALENDRONATE SODIUM [Concomitant]
     Indication: BONE DISORDER
     Dosage: 70 MG, QW
     Route: 048
  9. FOLIC ACID [Concomitant]
     Indication: IMMUNE SYSTEM DISORDER
     Dosage: 1 MG, TID
     Route: 048

REACTIONS (4)
  - VOMITING [None]
  - INFLUENZA LIKE ILLNESS [None]
  - DIARRHOEA [None]
  - NAUSEA [None]
